FAERS Safety Report 7002811-5 (Version None)
Quarter: 2010Q3

REPORT INFORMATION
  Report Type: 
  Country: None (occurrence: None)
  Receive Date: 20100920
  Receipt Date: 20100914
  Transmission Date: 20110219
  Serious: Yes (Other)
  Sender: FDA-Public Use
  Company Number: CHPA2010US14680

PATIENT
  Age: 69 Year
  Sex: Male
  Weight: 88.435 kg

DRUGS (1)
  1. GAS-X (NCH) [Suspect]
     Indication: ABDOMINAL DISTENSION
     Dosage: 125 MG, QD
     Route: 048
     Dates: start: 20100913, end: 20100901

REACTIONS (1)
  - BLOOD GLUCOSE INCREASED [None]
